FAERS Safety Report 12271646 (Version 8)
Quarter: 2016Q4

REPORT INFORMATION
  Report Type: Spontaneous
  Country: IE (occurrence: IE)
  Receive Date: 20160415
  Receipt Date: 20161130
  Transmission Date: 20170207
  Serious: Yes (Death, Hospitalization, Other)
  Sender: FDA-Public Use
  Company Number: IE-PFIZER INC-2016209765

PATIENT
  Age: 63 Year
  Sex: Female

DRUGS (10)
  1. DIAZEPAM. [Concomitant]
     Active Substance: DIAZEPAM
     Dosage: 2 MG, UNK
     Dates: start: 20140903
  2. TEMAZEPAM. [Concomitant]
     Active Substance: TEMAZEPAM
     Dosage: 20 MG AT NIGHT
  3. SERTRALINE HCL [Suspect]
     Active Substance: SERTRALINE HYDROCHLORIDE
     Dosage: 50 MG, UNK
     Dates: start: 20140903, end: 20140908
  4. SERTRALINE HCL [Suspect]
     Active Substance: SERTRALINE HYDROCHLORIDE
     Dosage: 100 MG, UNK
     Dates: start: 20140717, end: 20140902
  5. DIAZEPAM. [Concomitant]
     Active Substance: DIAZEPAM
     Dosage: 5 MG, UNK
     Dates: start: 20140712, end: 20140818
  6. LEXAPRO [Suspect]
     Active Substance: ESCITALOPRAM OXALATE
     Indication: DEPRESSION
     Dosage: UNK
     Dates: start: 201402, end: 201407
  7. SOLPADEINE (ACETAMINOPHEN\CODEINE) [Concomitant]
     Active Substance: ACETAMINOPHEN\CODEINE PHOSPHATE
     Dosage: UNK
  8. SERTRALINE HCL [Suspect]
     Active Substance: SERTRALINE HYDROCHLORIDE
     Indication: DEPRESSION
     Dosage: 50 MG, UNK
     Dates: start: 20140715, end: 20160716
  9. ZISPIN [Suspect]
     Active Substance: MIRTAZAPINE
     Dosage: 30 MG, UNK
     Dates: start: 20140903
  10. ZISPIN [Suspect]
     Active Substance: MIRTAZAPINE
     Dosage: 15 MG, UNK
     Dates: start: 20140712, end: 20140902

REACTIONS (21)
  - Fall [Unknown]
  - Head injury [Unknown]
  - Altered state of consciousness [Unknown]
  - Completed suicide [Fatal]
  - Withdrawal syndrome [Fatal]
  - Haemorrhage [Unknown]
  - Electrocardiogram abnormal [Unknown]
  - Blood test abnormal [Unknown]
  - Fear of death [Unknown]
  - Hepatic enzyme abnormal [Unknown]
  - Electrocardiogram QT prolonged [Fatal]
  - Electrocardiogram ST segment elevation [Unknown]
  - Hyponatraemia [Unknown]
  - Liver function test abnormal [Unknown]
  - Fear [Unknown]
  - Fall [Unknown]
  - Agitation [Unknown]
  - Panic reaction [Unknown]
  - Negative thoughts [Unknown]
  - Contusion [Unknown]
  - Coagulopathy [Unknown]

NARRATIVE: CASE EVENT DATE: 2014
